FAERS Safety Report 5479307-5 (Version None)
Quarter: 2007Q4

REPORT INFORMATION
  Report Type: 
  Country: None (occurrence: None)
  Receive Date: 20071008
  Receipt Date: 20071002
  Transmission Date: 20080405
  Serious: Yes (Other)
  Sender: FDA-Public Use
  Company Number: PHFR2007GB02899

PATIENT
  Age: 71 Year
  Sex: Female
  Weight: 57 kg

DRUGS (4)
  1. GLEEVEC [Suspect]
     Indication: GASTROINTESTINAL STROMAL TUMOUR
     Dosage: 400 MG, QD
     Route: 048
     Dates: start: 20060330, end: 20061001
  2. ACETYLSALICYLIC ACID [Concomitant]
     Indication: ANGINA PECTORIS
     Dosage: 75MG DAILY
     Dates: start: 19990101
  3. OMEPRAZOLE [Concomitant]
     Indication: GASTROINTESTINAL DISORDER
     Dosage: 20 MG/DAY
     Dates: start: 20070101
  4. DIGOXIN [Concomitant]
     Indication: CARDIAC FIBRILLATION
     Dosage: 125 MCG/DAY
     Dates: start: 20060101

REACTIONS (3)
  - AMNESIA [None]
  - FAECAL INCONTINENCE [None]
  - FATIGUE [None]
